FAERS Safety Report 7374501 (Version 3)
Quarter: 2016Q2

REPORT INFORMATION
  Report Type: Spontaneous
  Country: US (occurrence: US)
  Receive Date: 20100503
  Receipt Date: 20160427
  Transmission Date: 20160815
  Serious: No
  Sender: FDA-Public Use
  Company Number: US-ASTRAZENECA-2009SE13568

PATIENT
  Age: 63 Year
  Sex: Female
  Weight: 68 kg

DRUGS (39)
  1. DALIRESP [Interacting]
     Active Substance: ROFLUMILAST
     Indication: ASTHMA
     Route: 048
  2. TUDORZA PRESSAIR [Interacting]
     Active Substance: ACLIDINIUM BROMIDE
     Indication: CHRONIC OBSTRUCTIVE PULMONARY DISEASE
     Route: 055
     Dates: start: 2014
  3. ALBUTEROL SULFATE. [Concomitant]
     Active Substance: ALBUTEROL SULFATE
     Indication: LUNG DISORDER
     Route: 048
  4. ALBUTEROL SULFATE. [Concomitant]
     Active Substance: ALBUTEROL SULFATE
     Indication: LUNG DISORDER
     Route: 048
  5. PREDNISONE. [Concomitant]
     Active Substance: PREDNISONE
     Indication: DYSPNOEA
     Route: 048
  6. ADVILL [Concomitant]
  7. CLARITIN-D 12 HOUR [Concomitant]
     Active Substance: LORATADINE\PSEUDOEPHEDRINE SULFATE
     Indication: SINUSITIS
     Dosage: DAILY
  8. OXYGEN. [Concomitant]
     Active Substance: OXYGEN
  9. DALIRESP [Interacting]
     Active Substance: ROFLUMILAST
     Indication: EMPHYSEMA
     Route: 048
     Dates: start: 2014
  10. PREDNISONE. [Concomitant]
     Active Substance: PREDNISONE
     Indication: DYSPNOEA
     Route: 048
  11. ROBITUSSIN COUGH SYRUP AC [Concomitant]
     Dosage: AT NIGHT
  12. ADVAIR HFA [Concomitant]
     Active Substance: FLUTICASONE PROPIONATE\SALMETEROL XINAFOATE
     Dosage: 500, TWO TIMES A DAY
  13. ERGOCALCIFEROL. [Concomitant]
     Active Substance: ERGOCALCIFEROL
  14. DALIRESP [Interacting]
     Active Substance: ROFLUMILAST
     Indication: CHRONIC OBSTRUCTIVE PULMONARY DISEASE
     Route: 048
     Dates: start: 2014
  15. LEVOTHYROXINE. [Concomitant]
     Active Substance: LEVOTHYROXINE
     Indication: THYROID DISORDER
     Route: 048
  16. THEOPHYLLINE [Concomitant]
     Active Substance: THEOPHYLLINE ANHYDROUS
     Indication: DYSPNOEA
  17. AMLODIPINE [Concomitant]
     Active Substance: AMLODIPINE BESYLATE
     Indication: CARDIAC DISORDER
     Route: 048
  18. ALBUTEROL/IPRATROPIUM [Concomitant]
     Active Substance: ALBUTEROL\IPRATROPIUM
     Dosage: EVERY 4 - 6 HOURS
     Route: 055
  19. ROBITUSSIN (GUAIFENESIN) [Concomitant]
     Active Substance: GUAIFENESIN
     Dosage: DAILY
  20. TUDORZA PRESSAIR [Interacting]
     Active Substance: ACLIDINIUM BROMIDE
     Indication: ASTHMA
     Route: 055
     Dates: start: 2014
  21. AZITHROMYCIN ANHYDROUS. [Concomitant]
     Active Substance: AZITHROMYCIN ANHYDROUS
  22. VERAMYST [Concomitant]
     Active Substance: FLUTICASONE FUROATE
     Route: 045
  23. QVAR [Concomitant]
     Active Substance: BECLOMETHASONE DIPROPIONATE
  24. PROAIR HFA [Concomitant]
     Active Substance: ALBUTEROL SULFATE
     Dosage: AS REQUIRED
  25. NEXIUM [Suspect]
     Active Substance: ESOMEPRAZOLE MAGNESIUM
     Indication: GASTROOESOPHAGEAL REFLUX DISEASE
     Route: 048
     Dates: start: 20090831
  26. DALIRESP [Interacting]
     Active Substance: ROFLUMILAST
     Indication: EMPHYSEMA
     Route: 048
  27. TUDORZA PRESSAIR [Interacting]
     Active Substance: ACLIDINIUM BROMIDE
     Indication: EMPHYSEMA
     Route: 055
     Dates: start: 2014
  28. VERAPAMIL [Concomitant]
     Active Substance: VERAPAMIL HYDROCHLORIDE
     Route: 048
  29. ADVILL [Concomitant]
     Dosage: AS REQUIRED
  30. AZITHROMYCIN ANHYDROUS. [Concomitant]
     Active Substance: AZITHROMYCIN ANHYDROUS
  31. DALIRESP [Interacting]
     Active Substance: ROFLUMILAST
     Indication: CHRONIC OBSTRUCTIVE PULMONARY DISEASE
     Route: 048
  32. LEVOTHYROXINE. [Concomitant]
     Active Substance: LEVOTHYROXINE
     Indication: THYROID DISORDER
     Route: 048
  33. THEOPHYLLINE [Concomitant]
     Active Substance: THEOPHYLLINE ANHYDROUS
     Indication: DYSPNOEA
  34. THEOPHYLLINE [Concomitant]
     Active Substance: THEOPHYLLINE ANHYDROUS
     Indication: DYSPNOEA
  35. ERGOCALCIFEROL. [Concomitant]
     Active Substance: ERGOCALCIFEROL
  36. ADVIL [Concomitant]
     Active Substance: IBUPROFEN
  37. DALIRESP [Interacting]
     Active Substance: ROFLUMILAST
     Indication: ASTHMA
     Route: 048
     Dates: start: 2014
  38. ZANTAC [Concomitant]
     Active Substance: RANITIDINE HYDROCHLORIDE
     Dosage: 150, TWO TIMES A DAY
  39. MUSINEX [Concomitant]
     Dosage: EVERY 12 HOURS

REACTIONS (9)
  - Asthma [Unknown]
  - Drug dose omission [Unknown]
  - Dyspnoea [Not Recovered/Not Resolved]
  - Abdominal distension [Recovered/Resolved]
  - Off label use [Unknown]
  - Drug interaction [Unknown]
  - Nasal congestion [Unknown]
  - Diarrhoea haemorrhagic [Unknown]
  - Eructation [Unknown]

NARRATIVE: CASE EVENT DATE: 2016
